FAERS Safety Report 7747738-6 (Version None)
Quarter: 2011Q3

REPORT INFORMATION
  Report Type: 
  Country: None (occurrence: None)
  Receive Date: 20110913
  Receipt Date: 20110906
  Transmission Date: 20111222
  Serious: Yes (Other)
  Sender: FDA-Public Use
  Company Number: US-ASTRAZENECA-2011SE53640

PATIENT
  Age: 47 Year
  Sex: Male

DRUGS (1)
  1. PRILOSEC OTC [Suspect]
     Dosage: TAKES UP SIX PRILOSEC PER DAY
     Route: 048

REACTIONS (6)
  - MYOCARDIAL INFARCTION [None]
  - DRUG INEFFECTIVE [None]
  - SLEEP DISORDER DUE TO A GENERAL MEDICAL CONDITION [None]
  - DYSPEPSIA [None]
  - INCORRECT DOSE ADMINISTERED [None]
  - GASTROOESOPHAGEAL REFLUX DISEASE [None]
